FAERS Safety Report 6324823-7 (Version None)
Quarter: 2009Q3

REPORT INFORMATION
  Report Type: 
  Country: None (occurrence: None)
  Receive Date: 20090824
  Receipt Date: 20090626
  Transmission Date: 20100115
  Serious: No
  Sender: FDA-Public Use
  Company Number: US-ABBOTT-09P-163-0581622-00

PATIENT
  Sex: Female
  Weight: 99.88 kg

DRUGS (13)
  1. NIASPAN [Suspect]
     Indication: BLOOD CHOLESTEROL INCREASED
     Dosage: AT BEDTIME
     Dates: start: 20090601
  2. TOPROL-XL [Concomitant]
     Indication: DRUG USE FOR UNKNOWN INDICATION
  3. BENICAR [Concomitant]
     Indication: DRUG USE FOR UNKNOWN INDICATION
  4. LASIX [Concomitant]
     Indication: DRUG USE FOR UNKNOWN INDICATION
  5. THYROID TAB [Concomitant]
     Indication: DRUG USE FOR UNKNOWN INDICATION
  6. EFFEXOR [Concomitant]
     Indication: DRUG USE FOR UNKNOWN INDICATION
  7. PROTONIX [Concomitant]
     Indication: DRUG USE FOR UNKNOWN INDICATION
  8. CENTRUM S [Concomitant]
     Indication: DRUG USE FOR UNKNOWN INDICATION
  9. DCN 100 [Concomitant]
     Indication: BACK PAIN
  10. ASPIRIN [Concomitant]
     Indication: DRUG USE FOR UNKNOWN INDICATION
  11. BENADRYL [Concomitant]
     Indication: DRUG USE FOR UNKNOWN INDICATION
     Dosage: AS NEEDED
  12. HYDROCODONE [Concomitant]
     Indication: TOOTHACHE
  13. PENICILLIN [Concomitant]
     Indication: TOOTH INFECTION

REACTIONS (2)
  - FLUSHING [None]
  - PRURITUS [None]
